FAERS Safety Report 15765136 (Version 3)
Quarter: 2020Q1

REPORT INFORMATION
  Report Type: Spontaneous
  Country: US (occurrence: US)
  Receive Date: 20181227
  Receipt Date: 20200127
  Transmission Date: 20200409
  Serious: Yes (Hospitalization, Other)
  Sender: FDA-Public Use
  Company Number: US-PIRAMAL ENTERPRISES LIMITED-2018-PEL-003524

PATIENT

DRUGS (2)
  1. GABLOFEN [Suspect]
     Active Substance: BACLOFEN
     Indication: CEREBRAL PALSY
     Dosage: 75 MICROGRAM, SINGLE(BOLUS)
     Route: 037
     Dates: start: 20181004
  2. GABLOFEN [Suspect]
     Active Substance: BACLOFEN
     Indication: MUSCLE SPASTICITY
     Dosage: 475 MICROGRAM, QD
     Route: 037

REACTIONS (5)
  - Muscle spasticity [Recovered/Resolved]
  - Device breakage [Recovered/Resolved]
  - Drug withdrawal syndrome [Recovered/Resolved]
  - Implant site infection [Unknown]
  - Pneumonia [Recovered/Resolved]
